FAERS Safety Report 21164854 (Version 9)
Quarter: 2024Q3

REPORT INFORMATION
  Report Type: Spontaneous
  Country: US (occurrence: US)
  Receive Date: 20220803
  Receipt Date: 20240906
  Transmission Date: 20241017
  Serious: Yes (Hospitalization, Other)
  Sender: PFIZER
  Company Number: US-PFIZER INC-202200905724

PATIENT
  Age: 9 Year
  Sex: Male
  Weight: 27.256 kg

DRUGS (3)
  1. GENOTROPIN [Suspect]
     Active Substance: SOMATROPIN
     Indication: Short stature
     Dosage: 1.2 MG, 1X/DAY, EVERY NIGHT
  2. GENOTROPIN [Suspect]
     Active Substance: SOMATROPIN
     Indication: Growth disorder
  3. GENOTROPIN [Suspect]
     Active Substance: SOMATROPIN
     Indication: Growth hormone deficiency

REACTIONS (2)
  - Drug dose omission by device [Unknown]
  - Device operational issue [Unknown]

NARRATIVE: CASE EVENT DATE: 20220626
